FAERS Safety Report 4945346-3 (Version None)
Quarter: 2006Q1

REPORT INFORMATION
  Report Type: 
  Country: None (occurrence: None)
  Receive Date: 20060315
  Receipt Date: 20060315
  Transmission Date: 20060701
  Serious: No
  Sender: FDA-Public Use
  Company Number: None

PATIENT
  Sex: Female
  Weight: 77.5651 kg

DRUGS (1)
  1. KETEK [Suspect]
     Indication: SINUSITIS
     Dates: start: 20051212, end: 20051220

REACTIONS (2)
  - ARTHRALGIA [None]
  - LIVER FUNCTION TEST ABNORMAL [None]
